FAERS Safety Report 9192385 (Version 1)
Quarter: 2013Q1

REPORT INFORMATION
  Report Type: Spontaneous
  Country: US (occurrence: None)
  Receive Date: 20120703
  Receipt Date: 20120703
  Transmission Date: 20140127
  Serious: Yes (Hospitalization)
  Sender: FDA-Public Use
  Company Number: PHEH2012US005147

PATIENT
  Sex: Male

DRUGS (10)
  1. GILENYA  (FTY)CAPSULE,0.5MG [Suspect]
     Indication: RELAPSING-REMITTING MULTIPLE SCLEROSIS
     Route: 048
     Dates: start: 20111115, end: 20120301
  2. TIZANIDINE (TIZANIDINE) [Concomitant]
  3. WELLBUTRIN (BUPROPION HYDROCHLORIDE) [Concomitant]
  4. TESTIM (TESTORSTERONE) [Concomitant]
  5. ADDERALL (AMFETAMINE ASPARTATE, AMFETAMINE SULFATE, DEXAMFETAMINE SACCHARATE, DEXAMFETAMINE SULFATE) [Concomitant]
  6. PROVIGIL (MODAFINIL) [Concomitant]
  7. VITAMIN D (ERGOCALCIFEROL) [Concomitant]
  8. CODEINE (CODEINE) [Concomitant]
  9. SAXAGLIPTIN (SAXAGLIPTIN) [Concomitant]
  10. INSULIN (INSULIN) [Concomitant]

REACTIONS (6)
  - Multiple sclerosis relapse [None]
  - Central nervous system lesion [None]
  - Gait disturbance [None]
  - Cognitive disorder [None]
  - Fatigue [None]
  - Disturbance in attention [None]
